FAERS Safety Report 15833534 (Version 3)
Quarter: 2019Q4

REPORT INFORMATION
  Report Type: Spontaneous
  Country: US (occurrence: US)
  Receive Date: 20190116
  Receipt Date: 20191028
  Transmission Date: 20200122
  Serious: Yes (Other)
  Sender: FDA-Public Use
  Company Number: US-SA-2019SA008243

PATIENT
  Age: 52 Year
  Sex: Female
  Weight: 77 kg

DRUGS (10)
  1. NEOSAR [Concomitant]
     Active Substance: CYCLOPHOSPHAMIDE
     Indication: BREAST CANCER FEMALE
  2. CYTOXAN [Concomitant]
     Active Substance: CYCLOPHOSPHAMIDE
     Indication: BREAST CANCER FEMALE
     Dosage: 1146 MG
     Dates: start: 20130724
  3. TAXOTERE [Suspect]
     Active Substance: DOCETAXEL
     Indication: BREAST CANCER FEMALE
     Dosage: 143 MG, Q3W
     Route: 042
     Dates: start: 20130724, end: 20130724
  4. TAXOTERE [Suspect]
     Active Substance: DOCETAXEL
     Dosage: 146 MG
     Route: 042
     Dates: start: 20130925, end: 20130925
  5. CYTOXAN [Concomitant]
     Active Substance: CYCLOPHOSPHAMIDE
     Dosage: 1146 MG
     Dates: start: 20130814
  6. TAXOTERE [Suspect]
     Active Substance: DOCETAXEL
     Dosage: 143 MG
     Route: 042
     Dates: start: 20130814, end: 20130814
  7. CYTOXAN [Concomitant]
     Active Substance: CYCLOPHOSPHAMIDE
     Dosage: 1146 MG
     Dates: start: 20130904
  8. CYTOXAN [Concomitant]
     Active Substance: CYCLOPHOSPHAMIDE
     Dosage: 1170 MG
     Dates: start: 20130925
  9. SPIRONOLACTONE. [Concomitant]
     Active Substance: SPIRONOLACTONE
     Dosage: UNK
     Dates: start: 200301
  10. TAXOTERE [Suspect]
     Active Substance: DOCETAXEL
     Dosage: 143 MG
     Route: 042
     Dates: start: 20130904, end: 20130904

REACTIONS (5)
  - Alopecia [Recovering/Resolving]
  - Emotional distress [Unknown]
  - Impaired quality of life [Unknown]
  - Pain [Unknown]
  - Anxiety [Unknown]

NARRATIVE: CASE EVENT DATE: 201403
